FAERS Safety Report 21335434 (Version 4)
Quarter: 2023Q1

REPORT INFORMATION
  Report Type: Report from Study
  Country: CA (occurrence: CA)
  Receive Date: 20220915
  Receipt Date: 20230301
  Transmission Date: 20230418
  Serious: Yes (Other)
  Sender: FDA-Public Use
  Company Number: CA-JNJFOC-20220863573

PATIENT
  Age: 61 Year
  Sex: Female

DRUGS (2)
  1. SIMPONI [Suspect]
     Active Substance: GOLIMUMAB
     Indication: Rheumatoid arthritis
     Route: 041
     Dates: start: 20220729
  2. SIMPONI [Suspect]
     Active Substance: GOLIMUMAB
     Dosage: EARLIER TREATMENT START DATE-29-JUL-2022- REINDUCTION OR CHANGE TO INDUCTION DOSING.?HAD WEEK 0 ON
     Route: 041
     Dates: start: 20220825

REACTIONS (6)
  - Arthritis infective [Recovered/Resolved]
  - Synovial rupture [Unknown]
  - Pain in jaw [Unknown]
  - Lip swelling [Unknown]
  - Incision site haemorrhage [Unknown]
  - Off label use [Unknown]

NARRATIVE: CASE EVENT DATE: 20220825
